FAERS Safety Report 7309937-7 (Version None)
Quarter: 2011Q1

REPORT INFORMATION
  Report Type: 
  Country: None (occurrence: None)
  Receive Date: 20110224
  Receipt Date: 20110209
  Transmission Date: 20110831
  Serious: No
  Sender: FDA-Public Use
  Company Number: GB-CELGENEUS-167-20785-11021239

PATIENT
  Age: 71 Year
  Sex: Male

DRUGS (3)
  1. THALIDOMIDE [Suspect]
     Route: 048
     Dates: start: 20101013, end: 20101229
  2. DEXAMETHASONE [Suspect]
     Route: 048
     Dates: start: 20101013, end: 20101228
  3. CYCLOPHOSPHAMIDE [Suspect]
     Route: 048
     Dates: start: 20101013, end: 20101228

REACTIONS (1)
  - PERONEAL NERVE PALSY [None]
